FAERS Safety Report 6562231-4 (Version None)
Quarter: 2010Q1

REPORT INFORMATION
  Report Type: 
  Country: None (occurrence: None)
  Receive Date: 20100130
  Receipt Date: 20091103
  Transmission Date: 20100710
  Serious: Yes (Hospitalization)
  Sender: FDA-Public Use
  Company Number: US-ABBOTT-09P-163-0606978-00

PATIENT
  Sex: Female
  Weight: 59.02 kg

DRUGS (2)
  1. HUMIRA [Suspect]
     Indication: RHEUMATOID ARTHRITIS
     Dosage: STARTED ON PFS, SWITCHED TO  PEN ON UNKNOWN DATE
     Route: 058
     Dates: start: 20050101, end: 20090501
  2. HUMIRA [Suspect]
     Route: 058
     Dates: start: 20090501, end: 20090917

REACTIONS (5)
  - ASTHENIA [None]
  - COUGH [None]
  - HYPERHIDROSIS [None]
  - PNEUMONIA [None]
  - PYREXIA [None]
